FAERS Safety Report 9403347 (Version 2)
Quarter: 2013Q3

REPORT INFORMATION
  Report Type: Spontaneous
  Country: AU (occurrence: AU)
  Receive Date: 20130716
  Receipt Date: 20130730
  Transmission Date: 20140515
  Serious: Yes (Death)
  Sender: FDA-Public Use
  Company Number: AU-B.I. PHARMACEUTICALS,INC./RIDGEFIELD-2013-AU-00842AU

PATIENT
  Sex: Male
  Weight: 88 kg

DRUGS (14)
  1. PRADAXA [Suspect]
     Indication: CEREBROVASCULAR ACCIDENT PROPHYLAXIS
     Dosage: 300 MG
     Route: 048
     Dates: start: 20110714
  2. PRADAXA [Suspect]
     Indication: ATRIAL FIBRILLATION
  3. FRUSEMIDE [Concomitant]
     Dosage: 20 MG
     Route: 048
  4. ATORVASTATIN [Concomitant]
     Dosage: 20 MG
     Route: 048
  5. MICARDIS [Concomitant]
     Dosage: 80 MG
     Route: 048
  6. SERETIDE [Concomitant]
     Dosage: 250/25
     Route: 055
  7. SPIRIVA [Concomitant]
     Dosage: 18 MCG
     Route: 055
  8. PRIMOTESTON [Concomitant]
     Indication: TESTICULAR FAILURE
     Dosage: 8.3333 MG
     Route: 030
  9. VASOCARDOL [Concomitant]
     Dosage: 360 MG
     Route: 048
  10. VENTOLIN [Concomitant]
     Route: 055
  11. PANAMAX [Concomitant]
  12. PREDNISOLONE [Concomitant]
     Indication: CHRONIC OBSTRUCTIVE PULMONARY DISEASE
     Dosage: 50 MG
     Route: 048
  13. SEREPAX [Concomitant]
     Dosage: 15 MG
     Route: 048
  14. TESTOSTERONE [Concomitant]
     Dosage: 6.6667 MG
     Route: 058

REACTIONS (3)
  - Respiratory failure [Fatal]
  - Respiratory tract infection [Fatal]
  - Off label use [Unknown]
